FAERS Safety Report 9486657 (Version 1)
Quarter: 2013Q3

REPORT INFORMATION
  Report Type: Spontaneous
  Country: FR (occurrence: FR)
  Receive Date: 20130829
  Receipt Date: 20130829
  Transmission Date: 20140515
  Serious: Yes (Hospitalization)
  Sender: FDA-Public Use
  Company Number: FR-PFIZER INC-2013242060

PATIENT
  Age: 15 Year
  Sex: Female

DRUGS (3)
  1. ADEPAL [Suspect]
     Dosage: 1 DF (150-200UG/ 30-40UG), 1X/DAY
     Route: 048
     Dates: start: 201109, end: 20111010
  2. NOROXIN [Concomitant]
     Indication: DYSURIA
     Dosage: UNK
     Dates: start: 201109
  3. PARACETAMOL [Concomitant]
     Indication: DYSURIA
     Dosage: UNK
     Dates: start: 201109

REACTIONS (1)
  - Hepatitis cholestatic [Recovered/Resolved]
